FAERS Safety Report 5041810-X (Version None)
Quarter: 2006Q2

REPORT INFORMATION
  Report Type: 
  Country: None (occurrence: None)
  Receive Date: 20060630
  Receipt Date: 20060622
  Transmission Date: 20061013
  Serious: Yes (Hospitalization)
  Sender: FDA-Public Use
  Company Number: 200611695BCC

PATIENT
  Age: 75 Year
  Sex: Female
  Weight: 81.6475 kg

DRUGS (4)
  1. ASPIRIN [Suspect]
     Dosage: 81 MG, ORAL
     Route: 048
     Dates: end: 20060301
  2. MULTIVITAMIN [Suspect]
     Indication: VITAMIN A
     Dosage: ORAL
     Route: 048
     Dates: end: 20050601
  3. FISH OIL [Concomitant]
  4. BLOOD PRESSURE MEDICATION [Concomitant]

REACTIONS (1)
  - PNEUMONIA [None]
